FAERS Safety Report 13984024 (Version 5)
Quarter: 2018Q1

REPORT INFORMATION
  Report Type: Spontaneous
  Country: DE (occurrence: DE)
  Receive Date: 20170918
  Receipt Date: 20180329
  Transmission Date: 20180508
  Serious: Yes (Hospitalization)
  Sender: FDA-Public Use
  Company Number: DE-PFIZER INC-2017394225

PATIENT
  Age: 51 Year
  Sex: Male

DRUGS (2)
  1. FOLIC ACID. [Concomitant]
     Active Substance: FOLIC ACID
     Dosage: UNK (ON THE DAY AFTER METHOTREXATE ADMINISTERED (5 MG)
     Route: 065
  2. METHOTREXATE SODIUM. [Suspect]
     Active Substance: METHOTREXATE SODIUM
     Indication: IMMUNE THROMBOCYTOPENIC PURPURA
     Dosage: 150 MG, WEEKLY (150 MG,1 W)
     Route: 048

REACTIONS (3)
  - Product use in unapproved indication [Unknown]
  - Overdose [Not Recovered/Not Resolved]
  - Colitis ischaemic [Not Recovered/Not Resolved]
